FAERS Safety Report 4968704-X (Version None)
Quarter: 2006Q2

REPORT INFORMATION
  Report Type: 
  Country: None (occurrence: None)
  Receive Date: 20060411
  Receipt Date: 20060331
  Transmission Date: 20061013
  Serious: Yes (Disabling, Other)
  Sender: FDA-Public Use
  Company Number: PHNU2006DE01542

PATIENT
  Age: 64 Year
  Sex: Female

DRUGS (2)
  1. BISPHOSPHONATES [Concomitant]
     Route: 065
  2. ZOMETA [Suspect]
     Indication: METASTASES TO BONE
     Dosage: 4 MG, TIW

REACTIONS (5)
  - IMPAIRED HEALING [None]
  - OSTEONECROSIS [None]
  - SUTURE INSERTION [None]
  - TOOTH EXTRACTION [None]
  - WOUND DEBRIDEMENT [None]
